FAERS Safety Report 4952880-9 (Version None)
Quarter: 2006Q1

REPORT INFORMATION
  Report Type: 
  Country: None (occurrence: None)
  Receive Date: 20060324
  Receipt Date: 20060117
  Transmission Date: 20060701
  Serious: Yes (Death)
  Sender: FDA-Public Use
  Company Number: PHHO2006IN01038

PATIENT
  Age: 37 Year
  Sex: Male

DRUGS (1)
  1. GLEEVEC [Suspect]
     Indication: CHRONIC MYELOID LEUKAEMIA
     Dosage: 600 MG, QD
     Route: 048
     Dates: start: 20040704

REACTIONS (2)
  - CHRONIC MYELOID LEUKAEMIA [None]
  - SUBARACHNOID HAEMORRHAGE [None]
